FAERS Safety Report 8348247-6 (Version None)
Quarter: 2012Q2

REPORT INFORMATION
  Report Type: 
  Country: None (occurrence: None)
  Receive Date: 20120509
  Receipt Date: 20120504
  Transmission Date: 20120825
  Serious: Yes (Other)
  Sender: FDA-Public Use
  Company Number: CH-JNJFOC-20120410997

PATIENT
  Sex: Male

DRUGS (5)
  1. ANGIOTENSIN II ANTAGONISTS [Suspect]
     Indication: HYPERTENSION
  2. CELEBREX [Concomitant]
     Dates: start: 20120101
  3. ANTIHYPERTENSIVE [Concomitant]
     Dates: start: 20120101
  4. CANDESARTAN CILEXETIL [Concomitant]
     Dates: start: 20120101
  5. SIMPONI [Suspect]
     Indication: PSORIATIC ARTHROPATHY
     Route: 058
     Dates: start: 20110501

REACTIONS (1)
  - ANGIOEDEMA [None]
